FAERS Safety Report 6190768-9 (Version None)
Quarter: 2009Q2

REPORT INFORMATION
  Report Type: 
  Country: None (occurrence: None)
  Receive Date: 20090514
  Receipt Date: 20090506
  Transmission Date: 20091009
  Serious: Yes (Other)
  Sender: FDA-Public Use
  Company Number: GB-JNJCH-2009012804

PATIENT
  Sex: Female

DRUGS (1)
  1. REGAINE 2% [Suspect]
     Indication: ALOPECIA
     Dosage: TEXT:UNSPECIFIED
     Route: 061

REACTIONS (1)
  - BREAST CANCER [None]
